FAERS Safety Report 6969126-2 (Version None)
Quarter: 2010Q3

REPORT INFORMATION
  Report Type: 
  Country: None (occurrence: None)
  Receive Date: 20100907
  Receipt Date: 20100825
  Transmission Date: 20110219
  Serious: Yes (Hospitalization)
  Sender: FDA-Public Use
  Company Number: GXKR2010AU09619

PATIENT
  Age: 30 Year
  Sex: Male

DRUGS (4)
  1. MIRTAZAPINE [Suspect]
     Indication: MAJOR DEPRESSION
     Dosage: 15 MG/DAY
     Route: 065
  2. MIRTAZAPINE [Suspect]
     Dosage: 30 MG/DAY
     Route: 065
  3. SERTRALINE (NGX) [Suspect]
     Indication: MAJOR DEPRESSION
     Dosage: TITRATED TO 200 MG, UNK
     Route: 065
  4. QUETIAPINE [Concomitant]
     Indication: SLEEP DISORDER
     Dosage: 50 MG, UNK
     Route: 065

REACTIONS (15)
  - ABNORMAL BEHAVIOUR [None]
  - AGITATION [None]
  - CONFUSIONAL STATE [None]
  - DELIRIUM [None]
  - HYPERHIDROSIS [None]
  - HYPERREFLEXIA [None]
  - MENTAL STATUS CHANGES [None]
  - MYDRIASIS [None]
  - MYOCLONUS [None]
  - POSTURING [None]
  - PSYCHOMOTOR RETARDATION [None]
  - PYREXIA [None]
  - SEROTONIN SYNDROME [None]
  - TACHYCARDIA [None]
  - TREMOR [None]
